FAERS Safety Report 25702585 (Version 2)
Quarter: 2025Q3

REPORT INFORMATION
  Report Type: Spontaneous
  Country: JP (occurrence: JP)
  Receive Date: 20250819
  Receipt Date: 20250825
  Transmission Date: 20251021
  Serious: Yes (Other)
  Sender: PFIZER
  Company Number: JP-MLMSERVICE-20250807-PI606083-00255-1

PATIENT
  Age: 69 Year
  Sex: Male

DRUGS (6)
  1. PACLITAXEL [Suspect]
     Active Substance: PACLITAXEL
     Indication: Tongue cancer recurrent
  2. PACLITAXEL [Suspect]
     Active Substance: PACLITAXEL
     Indication: Metastases to lung
  3. PACLITAXEL [Suspect]
     Active Substance: PACLITAXEL
     Indication: Tongue neoplasm
  4. CETUXIMAB [Concomitant]
     Active Substance: CETUXIMAB
     Indication: Tongue cancer recurrent
  5. CETUXIMAB [Concomitant]
     Active Substance: CETUXIMAB
     Indication: Metastases to lung
  6. CETUXIMAB [Concomitant]
     Active Substance: CETUXIMAB
     Indication: Neoplasm progression

REACTIONS (1)
  - Retinopathy [Unknown]
